FAERS Safety Report 4917207-7 (Version None)
Quarter: 2006Q1

REPORT INFORMATION
  Report Type: 
  Country: None (occurrence: None)
  Receive Date: 20060221
  Receipt Date: 20060207
  Transmission Date: 20060701
  Serious: Yes (Hospitalization)
  Sender: FDA-Public Use
  Company Number: BR-GLAXOSMITHKLINE-A0594245A

PATIENT
  Age: 39 Year
  Sex: Male
  Weight: 60 kg

DRUGS (2)
  1. NIQUITIN 21MG [Suspect]
     Indication: SMOKING CESSATION THERAPY
     Dosage: 21MG UNKNOWN
     Route: 065
     Dates: start: 20060207
  2. OMEPRAZOLE [Concomitant]
     Dosage: 20MG AS REQUIRED

REACTIONS (4)
  - DIZZINESS [None]
  - HYPOAESTHESIA [None]
  - PRURITUS [None]
  - TACHYCARDIA [None]
